FAERS Safety Report 6809918-3 (Version None)
Quarter: 2010Q2

REPORT INFORMATION
  Report Type: 
  Country: None (occurrence: None)
  Receive Date: 20100630
  Receipt Date: 20100623
  Transmission Date: 20101027
  Serious: Yes (Other)
  Sender: FDA-Public Use
  Company Number: US-ROCHE-669874

PATIENT
  Sex: Female
  Weight: 54.9 kg

DRUGS (5)
  1. ACCUTANE [Suspect]
     Indication: ACNE
     Route: 065
     Dates: start: 19970901, end: 19980301
  2. ACCUTANE [Suspect]
     Route: 065
     Dates: start: 20000303
  3. ACCUTANE [Suspect]
     Route: 065
     Dates: start: 20000330
  4. ACCUTANE [Suspect]
     Route: 065
     Dates: start: 20000713, end: 20000731
  5. ASPIRIN [Concomitant]

REACTIONS (9)
  - COLITIS [None]
  - COLITIS ULCERATIVE [None]
  - CROHN'S DISEASE [None]
  - DEPRESSION [None]
  - ILEAL ULCER [None]
  - INFLAMMATORY BOWEL DISEASE [None]
  - PROCTITIS [None]
  - SUICIDAL IDEATION [None]
  - SUICIDE ATTEMPT [None]
